FAERS Safety Report 20334063 (Version 1)
Quarter: 2022Q1

REPORT INFORMATION
  Report Type: Spontaneous
  Country: US (occurrence: US)
  Receive Date: 20220113
  Receipt Date: 20220113
  Transmission Date: 20220423
  Serious: Yes (Other)
  Sender: FDA-Public Use
  Company Number: US-Blueprint Medicines Corporation-SP-US-2022-000063

PATIENT
  Age: 14 Year
  Sex: Male

DRUGS (2)
  1. AYVAKIT [Suspect]
     Active Substance: AVAPRITINIB
     Indication: Endocrine neoplasm malignant
     Route: 048
     Dates: start: 20211210
  2. AYVAKIT [Suspect]
     Active Substance: AVAPRITINIB
     Indication: Malignant nervous system neoplasm
     Route: 065

REACTIONS (4)
  - Dyspnoea [Recovering/Resolving]
  - White blood cell count decreased [Unknown]
  - Platelet count decreased [Unknown]
  - Off label use [Unknown]
